FAERS Safety Report 17124326 (Version 1)
Quarter: 2019Q4

REPORT INFORMATION
  Report Type: Report from Study
  Country: CA (occurrence: CA)
  Receive Date: 20191206
  Receipt Date: 20191206
  Transmission Date: 20200122
  Serious: Yes (Death)
  Sender: FDA-Public Use
  Company Number: PHHY2018CA038020

PATIENT
  Age: 67 Year
  Sex: Female

DRUGS (5)
  1. SANDOSTATIN LAR DEPOT [Suspect]
     Active Substance: OCTREOTIDE ACETATE
     Dosage: 30 MG, UNK
     Route: 030
  2. AFINITOR [Suspect]
     Active Substance: EVEROLIMUS
     Indication: PRODUCT USED FOR UNKNOWN INDICATION
     Route: 065
  3. OCTREOTIDE. [Concomitant]
     Active Substance: OCTREOTIDE
     Indication: CARCINOID TUMOUR
     Dosage: 200 UG, TID
     Route: 058
     Dates: start: 201802
  4. SANDOSTATIN LAR DEPOT [Suspect]
     Active Substance: OCTREOTIDE ACETATE
     Indication: CARCINOID TUMOUR
     Dosage: 60 MG, Q3W
     Route: 030
     Dates: start: 20180306
  5. SANDOSTATIN LAR DEPOT [Suspect]
     Active Substance: OCTREOTIDE ACETATE
     Dosage: 60 MG, Q3W
     Route: 030
     Dates: start: 20190704

REACTIONS (8)
  - Blood pressure decreased [Unknown]
  - Needle issue [Unknown]
  - Product physical consistency issue [Unknown]
  - Blood pressure increased [Unknown]
  - Rash [Unknown]
  - Dizziness [Unknown]
  - Inappropriate schedule of product administration [Unknown]
  - Death [Fatal]

NARRATIVE: CASE EVENT DATE: 20180622
